FAERS Safety Report 9853033 (Version 1)
Quarter: 2014Q1

REPORT INFORMATION
  Report Type: Spontaneous
  Country: US (occurrence: US)
  Receive Date: 20140129
  Receipt Date: 20140129
  Transmission Date: 20141002
  Serious: Yes (Other)
  Sender: FDA-Public Use
  Company Number: US-BAXTER-2014BAX003518

PATIENT
  Sex: Female

DRUGS (4)
  1. DIANEAL LOW CALCIUM [Suspect]
     Indication: PERITONEAL DIALYSIS
     Route: 033
     Dates: start: 201206
  2. DIANEAL LOW CALCIUM [Suspect]
     Route: 033
     Dates: start: 201206
  3. DIANEAL LOW CALCIUM [Suspect]
     Indication: PERITONEAL DIALYSIS
     Route: 033
     Dates: start: 201206
  4. DIANEAL LOW CALCIUM [Suspect]
     Route: 033
     Dates: start: 201206

REACTIONS (3)
  - Rash [Recovered/Resolved]
  - Hyperphagia [Unknown]
  - Fluid overload [Recovered/Resolved]
